FAERS Safety Report 21487272 (Version 1)
Quarter: 2022Q4

REPORT INFORMATION
  Report Type: Spontaneous
  Country: CA (occurrence: CA)
  Receive Date: 20221020
  Receipt Date: 20221020
  Transmission Date: 20230113
  Serious: No
  Sender: FDA-Public Use
  Company Number: CA-GSK-CA2022GSK150364

PATIENT

DRUGS (4)
  1. SOTROVIMAB [Suspect]
     Active Substance: SOTROVIMAB
     Indication: COVID-19
     Dosage: 500 MG (SINGLE DOSE)
     Route: 042
     Dates: start: 20220118
  2. SPIKEVAX [Suspect]
     Active Substance: ELASOMERAN
     Indication: COVID-19 immunisation
     Dosage: UNK
     Dates: start: 20210428
  3. SPIKEVAX [Suspect]
     Active Substance: ELASOMERAN
     Dosage: UNK
     Dates: start: 20210605
  4. SPIKEVAX [Suspect]
     Active Substance: ELASOMERAN
     Dosage: UNK
     Dates: start: 20220108

REACTIONS (3)
  - Premature delivery [Unknown]
  - Live birth [Unknown]
  - Exposure during pregnancy [Unknown]
